FAERS Safety Report 21558976 (Version 1)
Quarter: 2022Q4

REPORT INFORMATION
  Report Type: Spontaneous
  Country: US (occurrence: US)
  Receive Date: 20221107
  Receipt Date: 20221107
  Transmission Date: 20230112
  Serious: No
  Sender: FDA-Public Use
  Company Number: USA--2022-US-000186

PATIENT
  Age: 91 Year
  Sex: Male

DRUGS (4)
  1. DORZOLAMIDE HYDROCHLORIDE\TIMOLOL MALEATE [Suspect]
     Active Substance: DORZOLAMIDE HYDROCHLORIDE\TIMOLOL MALEATE
  2. Rocklatan ophthalmic solution 0.02% [Concomitant]
  3. Xarelto 15 mg tablet [Concomitant]
     Route: 048
  4. Refresh Optive Mega-3 artificial tears [Concomitant]
     Dates: start: 20220304, end: 20220307

REACTIONS (3)
  - Ocular hyperaemia [Recovered/Resolved]
  - Lacrimation increased [Recovered/Resolved]
  - Medication error [Recovered/Resolved]

NARRATIVE: CASE EVENT DATE: 20220225
